FAERS Safety Report 25249749 (Version 2)
Quarter: 2025Q2

REPORT INFORMATION
  Report Type: Spontaneous
  Country: GB (occurrence: GB)
  Receive Date: 20250429
  Receipt Date: 20250506
  Transmission Date: 20250716
  Serious: Yes (Hospitalization)
  Sender: MYLAN
  Company Number: GB-MYLANLABS-2025M1035777

PATIENT
  Sex: Male

DRUGS (2)
  1. CLOZARIL [Suspect]
     Active Substance: CLOZAPINE
     Indication: Schizophrenia
     Dates: start: 20040211, end: 20250417
  2. CLOZARIL [Suspect]
     Active Substance: CLOZAPINE

REACTIONS (4)
  - Lower respiratory tract infection [Unknown]
  - Pyrexia [Unknown]
  - Acute kidney injury [Unknown]
  - Treatment noncompliance [Unknown]
